FAERS Safety Report 5938244-X (Version None)
Quarter: 2008Q4

REPORT INFORMATION
  Report Type: 
  Country: None (occurrence: None)
  Receive Date: 20081031
  Receipt Date: 20081023
  Transmission Date: 20090506
  Serious: Yes (Hospitalization)
  Sender: FDA-Public Use
  Company Number: AN-PFIZER INC-2008091042

PATIENT
  Sex: Male

DRUGS (4)
  1. LIPITOR [Suspect]
     Indication: HYPERCHOLESTEROLAEMIA
     Route: 048
     Dates: start: 20021031, end: 20031003
  2. SELOKEEN [Suspect]
     Indication: ANGIOPLASTY
     Route: 048
     Dates: start: 20020201, end: 20050907
  3. ACETYLSALICYLIC ACID SRT [Concomitant]
     Route: 048
     Dates: start: 20020328
  4. ATACAND [Concomitant]
     Route: 048
     Dates: start: 20031114

REACTIONS (1)
  - HALLUCINATION [None]
